FAERS Safety Report 19073933 (Version 2)
Quarter: 2024Q4

REPORT INFORMATION
  Report Type: Spontaneous
  Country: CA (occurrence: CA)
  Receive Date: 20210330
  Receipt Date: 20241031
  Transmission Date: 20250114
  Serious: Yes (Life-Threatening, Hospitalization, Other)
  Sender: GLAXOSMITHKLINE
  Company Number: CA-GLAXOSMITHKLINE-CA2021AMR071546

PATIENT

DRUGS (4)
  1. LAMOTRIGINE [Suspect]
     Active Substance: LAMOTRIGINE
     Indication: Bipolar disorder
     Dosage: 1 DF (TABLET),QD, 25 MG
     Route: 048
  2. LAMOTRIGINE [Suspect]
     Active Substance: LAMOTRIGINE
     Dosage: 2 DF (TABLET), QD, 50 MG
     Route: 048
  3. HYDROXYCHLOROQUINE [Concomitant]
     Active Substance: HYDROXYCHLOROQUINE
     Indication: Product used for unknown indication
     Dosage: UNK
  4. AMOXICILLIN [Concomitant]
     Active Substance: AMOXICILLIN
     Indication: Product used for unknown indication
     Dosage: UNK

REACTIONS (9)
  - Swelling face [Recovering/Resolving]
  - Conjunctivitis [Recovering/Resolving]
  - Drug eruption [Recovering/Resolving]
  - Dysphagia [Recovering/Resolving]
  - Endotracheal intubation [Recovering/Resolving]
  - Periorbital oedema [Recovering/Resolving]
  - Stevens-Johnson syndrome [Recovering/Resolving]
  - Rash [Unknown]
  - Condition aggravated [Unknown]
